FAERS Safety Report 4345953-5 (Version None)
Quarter: 2004Q2

REPORT INFORMATION
  Report Type: 
  Country: None (occurrence: None)
  Receive Date: 20040421
  Receipt Date: 20040408
  Transmission Date: 20050107
  Serious: Yes (Congenital Anomaly)
  Sender: FDA-Public Use
  Company Number: 2004024844

PATIENT

DRUGS (1)
  1. ATORVASTATIN ( ATORVASTATIN) [Suspect]
     Indication: ILL-DEFINED DISORDER

REACTIONS (2)
  - CLEFT PALATE [None]
  - MATERNAL DRUGS AFFECTING FOETUS [None]
